FAERS Safety Report 14263438 (Version 3)
Quarter: 2018Q1

REPORT INFORMATION
  Report Type: Report from Study
  Country: JP (occurrence: JP)
  Receive Date: 20171208
  Receipt Date: 20180201
  Transmission Date: 20180508
  Serious: Yes (Death, Disabling)
  Sender: FDA-Public Use
  Company Number: JP-DSJP-DSJ-2017-157174

PATIENT

DRUGS (3)
  1. VASOLAN                            /00014302/ [Concomitant]
     Active Substance: VERAPAMIL HYDROCHLORIDE
     Dosage: 150MG/DAY
     Route: 048
  2. EDOXABAN [Suspect]
     Active Substance: EDOXABAN TOSYLATE
     Indication: ATRIAL FIBRILLATION
     Dosage: 30 MG, QD
     Route: 048
     Dates: start: 20160501, end: 20160506
  3. EDARAVONE [Suspect]
     Active Substance: EDARAVONE
     Dosage: 60MG/DAY
     Route: 042
     Dates: start: 20160430, end: 20160503

REACTIONS (3)
  - Disseminated intravascular coagulation [Fatal]
  - Hepatic function abnormal [Not Recovered/Not Resolved]
  - Pneumonia [Unknown]

NARRATIVE: CASE EVENT DATE: 20160506
